FAERS Safety Report 9029124 (Version 1)
Quarter: 2013Q1

REPORT INFORMATION
  Report Type: Spontaneous
  Country: JP (occurrence: JP)
  Receive Date: 20130122
  Receipt Date: 20130122
  Transmission Date: 20140127
  Serious: Yes (Other)
  Sender: FDA-Public Use
  Company Number: JP-ROCHE-1180356

PATIENT
  Age: 47 Year
  Sex: Female

DRUGS (2)
  1. AVASTIN [Suspect]
     Indication: BREAST CANCER
     Dosage: DOSAGE IS UNCERTAIN
     Route: 041
  2. ABRAXANE [Concomitant]
     Indication: BREAST CANCER
     Dosage: DOSAGE IS UNCERTAIN
     Route: 041

REACTIONS (1)
  - Macular oedema [Unknown]
